FAERS Safety Report 11203302 (Version 2)
Quarter: 2015Q3

REPORT INFORMATION
  Report Type: Report from Study
  Country: JP (occurrence: JP)
  Receive Date: 20150619
  Receipt Date: 20150930
  Transmission Date: 20151125
  Serious: Yes (Death, Hospitalization)
  Sender: FDA-Public Use
  Company Number: JP-BRISTOL-MYERS SQUIBB COMPANY-BMS-2015-038974

PATIENT
  Age: 68 Year
  Sex: Male

DRUGS (7)
  1. NIVOLUMAB [Suspect]
     Active Substance: NIVOLUMAB
     Dosage: 2 MG/KG, UNK
     Route: 041
     Dates: start: 20141020, end: 20141020
  2. NIVOLUMAB [Suspect]
     Active Substance: NIVOLUMAB
     Dosage: 2 MG/KG, UNK
     Route: 041
     Dates: start: 20141208, end: 20141208
  3. NIVOLUMAB [Suspect]
     Active Substance: NIVOLUMAB
     Dosage: 2 MG/KG, UNK
     Route: 041
     Dates: start: 20150105, end: 20150105
  4. NIVOLUMAB [Suspect]
     Active Substance: NIVOLUMAB
     Dosage: 2 MG/KG, UNK
     Route: 041
     Dates: start: 20150128, end: 20150128
  5. NIVOLUMAB [Suspect]
     Active Substance: NIVOLUMAB
     Indication: MALIGNANT MELANOMA
     Dosage: 2 MG/KG, UNK
     Route: 041
     Dates: start: 20140929, end: 20140929
  6. NIVOLUMAB [Suspect]
     Active Substance: NIVOLUMAB
     Dosage: 2 MG/KG, UNK
     Route: 041
     Dates: start: 20141117, end: 20141117
  7. NIVOLUMAB [Suspect]
     Active Substance: NIVOLUMAB
     Dosage: 2 MG/KG, UNK
     Route: 041
     Dates: start: 20150218, end: 20150218

REACTIONS (2)
  - Malaise [Not Recovered/Not Resolved]
  - Malignant neoplasm progression [Fatal]

NARRATIVE: CASE EVENT DATE: 2015
